FAERS Safety Report 16000526 (Version 1)
Quarter: 2019Q1

REPORT INFORMATION
  Report Type: Spontaneous
  Country: DE (occurrence: DE)
  Receive Date: 20190225
  Receipt Date: 20190225
  Transmission Date: 20190418
  Serious: Yes (Death, Life-Threatening)
  Sender: FDA-Public Use
  Company Number: DE-MYLANLABS-2019M1015448

PATIENT
  Age: 92 Year
  Sex: Male

DRUGS (12)
  1. RISPERIDONE. [Suspect]
     Active Substance: RISPERIDONE
     Indication: PRODUCT USED FOR UNKNOWN INDICATION
     Dosage: 0.5 MILLIGRAM, QD
     Route: 048
     Dates: start: 20171215, end: 20171216
  2. PIPAMPERON [Suspect]
     Active Substance: PIPAMPERONE HYDROCHLORIDE
     Indication: PRODUCT USED FOR UNKNOWN INDICATION
     Dosage: 80 MILLIGRAM, QD
     Dates: start: 20171215, end: 20180105
  3. ALLOPURINOL. [Concomitant]
     Active Substance: ALLOPURINOL
     Indication: GOUT
     Dosage: SEIT MONATEN
     Route: 048
     Dates: end: 20180105
  4. ELIQUIS [Concomitant]
     Active Substance: APIXABAN
     Indication: ANTICOAGULANT THERAPY
     Dosage: SEIT MONATEN
     Route: 048
     Dates: end: 20180105
  5. TORASEMID [Concomitant]
     Active Substance: TORSEMIDE
     Indication: DIURETIC THERAPY
     Dosage: 5 MILLIGRAM, QD
     Route: 048
     Dates: start: 20180103, end: 20180105
  6. RISPERIDONE. [Suspect]
     Active Substance: RISPERIDONE
     Dosage: 1.5 MILLIGRAM, QD
     Route: 048
     Dates: start: 20180103, end: 20180105
  7. PRAVASTATIN. [Concomitant]
     Active Substance: PRAVASTATIN
     Indication: LIPIDS INCREASED
     Dosage: SEIT WOCHEN
     Route: 048
     Dates: end: 20180105
  8. RAMIPRIL. [Concomitant]
     Active Substance: RAMIPRIL
     Dosage: SEIT MONATEN
     Route: 048
     Dates: end: 20180105
  9. AMLODIPIN                          /00972401/ [Concomitant]
     Active Substance: AMLODIPINE BESYLATE
     Dosage: SEIT MONATEN
     Route: 048
     Dates: end: 20180105
  10. RISPERIDONE. [Suspect]
     Active Substance: RISPERIDONE
     Dosage: 2 MILLIGRAM, QD
     Route: 048
     Dates: start: 20171217, end: 20180102
  11. PANTOPRAZOL                        /01263201/ [Concomitant]
     Active Substance: PANTOPRAZOLE
     Dosage: SEIT MONATEN
     Route: 048
     Dates: end: 20180105
  12. TAMSULOSIN [Concomitant]
     Active Substance: TAMSULOSIN
     Dosage: SEIT MONATEN
     Route: 048
     Dates: end: 20180105

REACTIONS (1)
  - Death [Fatal]

NARRATIVE: CASE EVENT DATE: 20180106
